FAERS Safety Report 23407321 (Version 2)
Quarter: 2024Q1

REPORT INFORMATION
  Report Type: Report from Study
  Country: US (occurrence: US)
  Receive Date: 20240116
  Receipt Date: 20240126
  Transmission Date: 20240410
  Serious: No
  Sender: FDA-Public Use
  Company Number: US-ABBVIE-5590032

PATIENT
  Age: 61 Year
  Sex: Female

DRUGS (1)
  1. HUMIRA [Suspect]
     Active Substance: ADALIMUMAB
     Indication: Psoriatic arthropathy
     Route: 058
     Dates: start: 20170101

REACTIONS (6)
  - Joint dislocation [Unknown]
  - Illness [Recovering/Resolving]
  - Pain in extremity [Not Recovered/Not Resolved]
  - Lower respiratory tract infection [Unknown]
  - Nasopharyngitis [Unknown]
  - Accident [Unknown]

NARRATIVE: CASE EVENT DATE: 20230110
